FAERS Safety Report 4925928-5 (Version None)
Quarter: 2006Q1

REPORT INFORMATION
  Report Type: 
  Country: None (occurrence: None)
  Receive Date: 20060228
  Receipt Date: 20050414
  Transmission Date: 20060701
  Serious: Yes (Other)
  Sender: FDA-Public Use
  Company Number: US-GLAXOSMITHKLINE-A0554424A

PATIENT
  Age: 3 Year
  Sex: Male

DRUGS (2)
  1. LAMICTAL [Suspect]
     Indication: BIPOLAR DISORDER
     Dosage: 12.5MG PER DAY
     Route: 048
     Dates: start: 20041212, end: 20041215
  2. LAMICTAL [Suspect]
     Route: 048
     Dates: start: 20050214, end: 20050317

REACTIONS (1)
  - RASH [None]
